FAERS Safety Report 9535010 (Version 1)
Quarter: 2013Q3

REPORT INFORMATION
  Report Type: Spontaneous
  Country: US (occurrence: US)
  Receive Date: 20130918
  Receipt Date: 20130918
  Transmission Date: 20140515
  Serious: Yes (Other)
  Sender: FDA-Public Use
  Company Number: US-PFIZER INC-2013267433

PATIENT
  Age: 65 Year
  Sex: Female

DRUGS (8)
  1. EFFEXOR XR [Suspect]
     Dosage: 225 MG, 1X/DAY (150MG 1 CAP DAILY, 75MG 1 CAP DAILY)
     Route: 048
  2. CRESTOR [Concomitant]
     Dosage: 10 MG, UNK
  3. METFORMIN [Concomitant]
     Dosage: 1000 MG, 2X/DAY
  4. LISINOPRIL [Concomitant]
     Dosage: 10 MG, UNK
  5. TRAMADOL [Concomitant]
     Dosage: 50 MG, UNK
  6. LORAZEPAM [Concomitant]
     Dosage: 0.5 MG, UNK
  7. OMEPRAZOLE [Concomitant]
     Dosage: 20 MG, UNK
  8. ASPIRIN [Concomitant]
     Dosage: 81 MG, UNK

REACTIONS (1)
  - Arthropathy [Unknown]
